FAERS Safety Report 13632486 (Version 1)
Quarter: 2017Q2

REPORT INFORMATION
  Report Type: Report from Study
  Country: AU (occurrence: AU)
  Receive Date: 20170608
  Receipt Date: 20170608
  Transmission Date: 20170830
  Serious: Yes (Other)
  Sender: FDA-Public Use
  Company Number: AU-REGENERON PHARMACEUTICALS, INC.-2017-16754

PATIENT

DRUGS (2)
  1. EYLEA [Suspect]
     Active Substance: AFLIBERCEPT
     Dosage: RIGHT EYE/ GOING EVERY 6 WEEKS, TOTAL NUMBER OF INJECTIONS RECEIVED NOT REPORTED
     Dates: start: 2017
  2. EYLEA [Suspect]
     Active Substance: AFLIBERCEPT
     Indication: DIABETIC RETINAL OEDEMA
     Dosage: LEFT EYE/ GOING EVERY 6 WEEKS
     Dates: start: 201612

REACTIONS (3)
  - Injection site nerve damage [Unknown]
  - Eye laser surgery [Unknown]
  - Headache [Unknown]
